FAERS Safety Report 11093837 (Version 1)
Quarter: 2015Q2

REPORT INFORMATION
  Report Type: Spontaneous
  Country: US (occurrence: US)
  Receive Date: 20150506
  Receipt Date: 20150506
  Transmission Date: 20150821
  Serious: Yes (Hospitalization)
  Sender: FDA-Public Use
  Company Number: US-ASTRAZENECA-2015SE19465

PATIENT
  Age: 6 Month
  Sex: Male
  Weight: 7.3 kg

DRUGS (6)
  1. PEDIARIX [Concomitant]
     Active Substance: DIPHTHERIA AND TETANUS TOXOIDS AND ACELLULAR PERTUSSIS AND HEPATITIS B AND INACTIVATED POLIOVIRUS VACCINE COMBINED
     Route: 030
     Dates: start: 20141017, end: 20141215
  2. SYNAGIS [Suspect]
     Active Substance: PALIVIZUMAB
     Indication: SPINAL MUSCULAR ATROPHY
     Route: 030
     Dates: start: 20140811, end: 20150310
  3. HIB [Concomitant]
     Route: 030
     Dates: start: 20141017, end: 20141215
  4. ROTARIX [Concomitant]
     Active Substance: HUMAN ROTAVIRUS A TYPE G1P(8) STRAIN RIX4414 LIVE ANTIGEN
     Route: 030
     Dates: start: 20141017, end: 20141215
  5. PREVNAR [Concomitant]
     Active Substance: PNEUMOCOCCAL 7-VALENT CONJUGATE VACCINE (DIPHTHERIA CRM197 PROTEIN)
     Route: 030
     Dates: start: 20141017, end: 20141215
  6. SYNAGIS [Suspect]
     Active Substance: PALIVIZUMAB
     Indication: ANTIVIRAL PROPHYLAXIS
     Route: 030
     Dates: start: 20140811, end: 20150310

REACTIONS (2)
  - Aspiration [Unknown]
  - Acute respiratory failure [Unknown]
